FAERS Safety Report 6269931-4 (Version None)
Quarter: 2009Q3

REPORT INFORMATION
  Report Type: 
  Country: None (occurrence: None)
  Receive Date: 20090714
  Receipt Date: 20090630
  Transmission Date: 20100115
  Serious: Yes (Hospitalization)
  Sender: FDA-Public Use
  Company Number: 2008001422

PATIENT
  Age: 50 Year
  Sex: Female

DRUGS (7)
  1. ERLOTINIB (ERLOTINIB) (TABLET) (ERLOTINIB) [Suspect]
     Indication: HEAD AND NECK CANCER
     Dosage: (150 MG, QD), ORAL
     Route: 048
     Dates: start: 20080428, end: 20080525
  2. ERLOTINIB (ERLOTINIB) (TABLET) (ERLOTINIB) [Suspect]
     Indication: SQUAMOUS CELL CARCINOMA
     Dosage: (150 MG, QD), ORAL
     Route: 048
     Dates: start: 20080428, end: 20080525
  3. CISPLATIN [Suspect]
     Indication: HEAD AND NECK CANCER
     Dosage: (30 MG/M2, QW) INTRAVENOUS
     Route: 042
     Dates: start: 20080428, end: 20080519
  4. CISPLATIN [Suspect]
     Indication: SQUAMOUS CELL CARCINOMA
     Dosage: (30 MG/M2, QW) INTRAVENOUS
     Route: 042
     Dates: start: 20080428, end: 20080519
  5. DICLOFENAC (DICLOFENAC) [Concomitant]
  6. FENTANILO [Concomitant]
  7. SEROPRAM (CITALOPRAM HYDROBROMIDE) [Concomitant]

REACTIONS (6)
  - DEHYDRATION [None]
  - DERMATITIS [None]
  - DYSPHAGIA [None]
  - FOOD INTOLERANCE [None]
  - MUCOSAL INFLAMMATION [None]
  - VOMITING [None]
